FAERS Safety Report 5701841-0 (Version None)
Quarter: 2008Q2

REPORT INFORMATION
  Report Type: 
  Country: None (occurrence: None)
  Receive Date: 20080411
  Receipt Date: 20080411
  Transmission Date: 20081010
  Serious: Yes (Other)
  Sender: FDA-Public Use
  Company Number: None

PATIENT
  Age: 73 Year
  Sex: Female
  Weight: 82.43 kg

DRUGS (3)
  1. HEPARIN LOCK-FLUSH [Suspect]
     Indication: NEOPLASM MALIGNANT
     Dosage: FLUSH PORT A CATH WITH 5 CC OF HEPARIN 100U/CC AFTER SALINE FLUSH, HEN CHEMO DISCONNECTED
     Dates: start: 20080303, end: 20080327
  2. HEPARIN LOCK-FLUSH [Suspect]
  3. HEPARIN LOCK-FLUSH [Suspect]

REACTIONS (2)
  - DYSPNOEA [None]
  - PHARMACEUTICAL PRODUCT COMPLAINT [None]
